APPROVED DRUG PRODUCT: OLMESARTAN MEDOXOMIL
Active Ingredient: OLMESARTAN MEDOXOMIL
Strength: 5MG
Dosage Form/Route: TABLET;ORAL
Application: A078276 | Product #001
Applicant: RISING PHARMA HOLDING INC
Approved: Oct 26, 2016 | RLD: No | RS: No | Type: DISCN